FAERS Safety Report 7714109-8 (Version None)
Quarter: 2011Q3

REPORT INFORMATION
  Report Type: 
  Country: None (occurrence: None)
  Receive Date: 20110828
  Receipt Date: 20110811
  Transmission Date: 20111222
  Serious: No
  Sender: FDA-Public Use
  Company Number: US-ROXANE LABORATORIES, INC.-2011-RO-00947RO

PATIENT
  Sex: Male

DRUGS (1)
  1. ZOLPIDEM [Suspect]
     Indication: SLEEP DISORDER
     Dosage: 10 MG
     Dates: start: 20110701

REACTIONS (2)
  - HYPOTENSION [None]
  - DRUG INEFFECTIVE [None]
